FAERS Safety Report 19265505 (Version 1)
Quarter: 2021Q2

REPORT INFORMATION
  Report Type: Spontaneous
  Country: US (occurrence: US)
  Receive Date: 20210517
  Receipt Date: 20210517
  Transmission Date: 20210717
  Serious: Yes (Hospitalization)
  Sender: FDA-Public Use
  Company Number: US-GW PHARMA-202105USGW02307

PATIENT

DRUGS (4)
  1. DEPAKOTE [Interacting]
     Active Substance: DIVALPROEX SODIUM
     Indication: PRODUCT USED FOR UNKNOWN INDICATION
     Dosage: UNK
     Route: 065
  2. EPIDIOLEX [Interacting]
     Active Substance: CANNABIDIOL
     Dosage: 1000 MILLIGRAM, QD (300 MG QAM AND 700 MG QHS, INCREASED DOSE)
     Route: 048
     Dates: start: 20210413
  3. ONFI [Suspect]
     Active Substance: CLOBAZAM
     Indication: PRODUCT USED FOR UNKNOWN INDICATION
     Dosage: UNK
     Route: 065
  4. EPIDIOLEX [Suspect]
     Active Substance: CANNABIDIOL
     Indication: SEVERE MYOCLONIC EPILEPSY OF INFANCY
     Dosage: UNK
     Route: 048
     Dates: start: 2017

REACTIONS (4)
  - Lethargy [Unknown]
  - Seizure [Recovered/Resolved]
  - Drug interaction [Unknown]
  - Depressed level of consciousness [Unknown]

NARRATIVE: CASE EVENT DATE: 2017
